FAERS Safety Report 14803643 (Version 1)
Quarter: 2018Q2

REPORT INFORMATION
  Report Type: Other
  Country: CA (occurrence: CA)
  Receive Date: 20180425
  Receipt Date: 20180425
  Transmission Date: 20180711
  Serious: Yes (Hospitalization, Other)
  Sender: FDA-Public Use
  Company Number: CA-APOTEX-2018AP010555

PATIENT
  Age: 24 Year
  Sex: Male

DRUGS (3)
  1. FENTANYL. [Suspect]
     Active Substance: FENTANYL
     Indication: PRODUCT USED FOR UNKNOWN INDICATION
     Dosage: UNK
     Route: 065
  2. FENTANYL. [Suspect]
     Active Substance: FENTANYL
     Dosage: 0.1 G, UNK
     Route: 065
  3. FENTANYL. [Suspect]
     Active Substance: FENTANYL
     Dosage: UNK
     Route: 048

REACTIONS (5)
  - Drug abuse [Recovered/Resolved]
  - Tachycardia [Recovering/Resolving]
  - Pulmonary oedema [Recovering/Resolving]
  - Depressed level of consciousness [Recovering/Resolving]
  - Haemoptysis [Recovering/Resolving]
